FAERS Safety Report 8880005 (Version 4)
Quarter: 2013Q1

REPORT INFORMATION
  Report Type: Spontaneous
  Country: BR (occurrence: BR)
  Receive Date: 20121101
  Receipt Date: 20130228
  Transmission Date: 20140127
  Serious: Yes (Other)
  Sender: FDA-Public Use
  Company Number: PHHY2012BR096933

PATIENT
  Sex: Female
  Weight: 50 kg

DRUGS (9)
  1. FORASEQ [Suspect]
     Indication: DYSPNOEA
     Dosage: 2 DF, 12/400MG
  2. FORASEQ [Suspect]
     Dosage: 2 DF, QD 12/200MCG
     Dates: start: 20111021
  3. LEXOTAN [Concomitant]
     Indication: SLEEP DISORDER
     Dosage: 1 DF, AT NIGHT
     Route: 048
  4. RIVOTRIL [Concomitant]
     Indication: HYPERTENSION
     Dosage: 1 DF, HALF IN MORNING AND HALF IN NIGHT
  5. DIURETICS [Concomitant]
  6. CALCIUM 500 [Concomitant]
     Indication: CALCIUM DEFICIENCY
     Dosage: 2 DF, QD
     Route: 048
  7. ALENDRONATE [Concomitant]
     Dosage: 1 DF, UNK
     Route: 048
  8. METICORTEN [Concomitant]
     Dosage: 2 DF, QD
     Route: 048
  9. METICORTEN [Concomitant]
     Dosage: 1 DF, QD

REACTIONS (14)
  - Fall [Recovered/Resolved]
  - Wrist fracture [Recovered/Resolved]
  - Upper limb fracture [Recovered/Resolved]
  - Osteoporosis [Not Recovered/Not Resolved]
  - Calcium deficiency [Not Recovered/Not Resolved]
  - Dyspnoea [Recovered/Resolved]
  - Depression [Not Recovered/Not Resolved]
  - Hypertension [Recovered/Resolved]
  - Fatigue [Recovered/Resolved]
  - Salivary hypersecretion [Recovered/Resolved]
  - Agitation [Recovered/Resolved]
  - Insomnia [Not Recovered/Not Resolved]
  - Nervousness [Recovering/Resolving]
  - Wrong technique in drug usage process [Unknown]
